FAERS Safety Report 14443741 (Version 2)
Quarter: 2018Q1

REPORT INFORMATION
  Report Type: Spontaneous
  Country: IT (occurrence: IT)
  Receive Date: 20180125
  Receipt Date: 20180205
  Transmission Date: 20180509
  Serious: Yes (Other)
  Sender: FDA-Public Use
  Company Number: IT-009507513-1801ITA008083

PATIENT
  Age: 32 Year
  Sex: Female
  Weight: 175 kg

DRUGS (3)
  1. NUVARING [Suspect]
     Active Substance: ETHINYL ESTRADIOL\ETONOGESTREL
     Indication: CONTRACEPTION
     Dosage: IN TOTAL 0.120/0.015 MG EVERY 24 H
     Route: 067
     Dates: start: 20170628, end: 20170818
  2. ELLAONE [Suspect]
     Active Substance: ULIPRISTAL ACETATE
     Indication: ABORTION INDUCED
     Dosage: IN TOTAL
     Dates: start: 20170721
  3. ELLAONE [Suspect]
     Active Substance: ULIPRISTAL ACETATE
     Indication: POST COITAL CONTRACEPTION

REACTIONS (1)
  - Drug ineffective [Not Recovered/Not Resolved]

NARRATIVE: CASE EVENT DATE: 20170721
